FAERS Safety Report 5077838-3 (Version None)
Quarter: 2006Q3

REPORT INFORMATION
  Report Type: 
  Country: None (occurrence: None)
  Receive Date: 20060807
  Receipt Date: 20060725
  Transmission Date: 20061208
  Serious: Yes (Other)
  Sender: FDA-Public Use
  Company Number: 2006092159

PATIENT
  Sex: Female

DRUGS (1)
  1. VFEND [Suspect]

REACTIONS (3)
  - AGITATION [None]
  - DEPRESSION [None]
  - DRUG LEVEL INCREASED [None]
